FAERS Safety Report 8582214-2 (Version None)
Quarter: 2012Q3

REPORT INFORMATION
  Report Type: 
  Country: None (occurrence: None)
  Receive Date: 20120727
  Receipt Date: 20120712
  Transmission Date: 20120928
  Serious: Yes (Other)
  Sender: FDA-Public Use
  Company Number: IN-1193215

PATIENT
  Age: 12 Year
  Sex: Male

DRUGS (3)
  1. ATROPINE SULFATE [Concomitant]
  2. CHLORAMPHENICOL [Suspect]
     Indication: ULCERATIVE KERATITIS
     Dosage: 0.5 % QID OPHTHALMIC)
     Route: 047
  3. PREDNISOLONE ACETATE OPHTHALMIC SUSPENSION/DROPS [Suspect]
     Indication: ULCERATIVE KERATITIS
     Dosage: 1 % Q1H OU OPHTHALMIC), (TAPERED ACCORDING TO TREATMENT RESPONSE OPHTHALMIC)
     Route: 047

REACTIONS (3)
  - CORNEAL SCAR [None]
  - KERATITIS BACTERIAL [None]
  - STREPTOCOCCUS TEST POSITIVE [None]
